FAERS Safety Report 5416749-8 (Version None)
Quarter: 2007Q3

REPORT INFORMATION
  Report Type: 
  Country: None (occurrence: None)
  Receive Date: 20070814
  Receipt Date: 20070808
  Transmission Date: 20080115
  Serious: Yes (Hospitalization)
  Sender: FDA-Public Use
  Company Number: 6036689

PATIENT
  Age: 79 Year
  Sex: Female

DRUGS (8)
  1. CARDENSIEL [Suspect]
     Indication: HYPERTENSION
     Dosage: 1,0714 MG (7, 5 MG, 1 IN 1 WK) ORAL
     Route: 048
     Dates: end: 20050104
  2. DIGOXIN [Suspect]
     Indication: ATRIAL FIBRILLATION
     Dosage: 1 DOSAGE FORMS (1 DOSAGE FORMS, 1 IN 1 D) ORAL
     Route: 048
     Dates: end: 20050105
  3. COZAAR [Suspect]
     Indication: HYPERTENSION
     Dosage: 1 MG (1 MG, 1 IN 1 D) ORAL
     Route: 048
  4. LASIX [Suspect]
     Indication: CARDIAC FAILURE
     Dosage: 1 DOSAGE FORMS (1 DOSAGE FORMS, 1 IN 1 D) ORAL
     Route: 048
     Dates: end: 20050104
  5. ALDACTONE [Suspect]
     Indication: CARDIAC FAILURE
     Dosage: 1 DOSAGE FORMS (1 DOSAGE FORMS, 1 IN 1 D) ORAL
     Route: 048
     Dates: end: 20050104
  6. COUMADIN [Concomitant]
  7. CALCIDOSE                   (CALCIUM CARBONATE) [Concomitant]
  8. RALOXIFENE HCL [Concomitant]

REACTIONS (6)
  - ATRIAL FIBRILLATION [None]
  - BRADYCARDIA [None]
  - CARDIOACTIVE DRUG LEVEL INCREASED [None]
  - DEHYDRATION [None]
  - DIARRHOEA [None]
  - RENAL FAILURE [None]
